FAERS Safety Report 5028768-4 (Version None)
Quarter: 2006Q2

REPORT INFORMATION
  Report Type: 
  Country: None (occurrence: None)
  Receive Date: 20060501
  Receipt Date: 20060125
  Transmission Date: 20061013
  Serious: Yes (Hospitalization)
  Sender: FDA-Public Use
  Company Number: 200610966US

PATIENT
  Age: 51 Year
  Sex: Male

DRUGS (2)
  1. KETEK [Suspect]
     Indication: INFLUENZA
     Dosage: 800 MG QD PO
     Route: 048
     Dates: start: 20060104, end: 20060105
  2. SYNTHROID [Concomitant]

REACTIONS (4)
  - ASTHENIA [None]
  - FATIGUE [None]
  - RASH PRURITIC [None]
  - SWELLING FACE [None]
